FAERS Safety Report 15242510 (Version 1)
Quarter: 2018Q3

REPORT INFORMATION
  Report Type: Spontaneous
  Country: DE (occurrence: DE)
  Receive Date: 20180806
  Receipt Date: 20180806
  Transmission Date: 20181010
  Serious: Yes (Death)
  Sender: FDA-Public Use
  Company Number: DE-ROCHE-2163992

PATIENT
  Age: 66 Year
  Sex: Male

DRUGS (3)
  1. ACTILYSE [Suspect]
     Active Substance: ALTEPLASE
     Indication: ANGIOGRAM
     Dosage: 2 MG/H
     Route: 013
  2. ACTILYSE [Suspect]
     Active Substance: ALTEPLASE
     Route: 013
  3. HEPARIN [Concomitant]
     Active Substance: HEPARIN SODIUM
     Indication: PRODUCT USED FOR UNKNOWN INDICATION
     Route: 013

REACTIONS (5)
  - Multiple organ dysfunction syndrome [Fatal]
  - Muscle necrosis [Fatal]
  - Soft tissue necrosis [Fatal]
  - Peripheral ischaemia [Fatal]
  - Microembolism [Fatal]
